FAERS Safety Report 6938173-9 (Version None)
Quarter: 2010Q3

REPORT INFORMATION
  Report Type: 
  Country: None (occurrence: None)
  Receive Date: 20100817
  Receipt Date: 20100805
  Transmission Date: 20110219
  Serious: No
  Sender: FDA-Public Use
  Company Number: 2010MA001469

PATIENT
  Age: 36 Year
  Sex: Female

DRUGS (2)
  1. RANITIDINE [Suspect]
     Indication: DYSPEPSIA
     Dosage: 300 MG; 1X; PO
     Route: 048
  2. IBUPROFEN [Suspect]
     Dosage: 600 MG;1X; PO
     Route: 048

REACTIONS (2)
  - ANAPHYLACTIC REACTION [None]
  - SKIN TEST POSITIVE [None]
